FAERS Safety Report 9654087 (Version 1)
Quarter: 2013Q4

REPORT INFORMATION
  Report Type: Spontaneous
  Country: US (occurrence: US)
  Receive Date: 20131029
  Receipt Date: 20131029
  Transmission Date: 20140711
  Serious: No
  Sender: FDA-Public Use
  Company Number: US-BIOGENIDEC-2013BI083122

PATIENT
  Age: 23 Year
  Sex: Female

DRUGS (1)
  1. TECFIDERA [Suspect]
     Indication: PRODUCT USED FOR UNKNOWN INDICATION
     Route: 048
     Dates: start: 20130715, end: 20130715

REACTIONS (6)
  - Urticaria [Unknown]
  - Erythema [Unknown]
  - Pruritus [Unknown]
  - Nausea [Unknown]
  - Chills [Unknown]
  - Dizziness [Unknown]
